FAERS Safety Report 5647039-6 (Version None)
Quarter: 2008Q1

REPORT INFORMATION
  Report Type: 
  Country: None (occurrence: None)
  Receive Date: 20080131
  Receipt Date: 20071114
  Transmission Date: 20080703
  Serious: Yes (Hospitalization)
  Sender: FDA-Public Use
  Company Number: 163-21880-07100819

PATIENT
  Age: 50 Year
  Sex: Female

DRUGS (10)
  1. REVLIMID [Suspect]
     Indication: MULTIPLE MYELOMA
     Dosage: 25 MG, 1 IN 1 D, ORAL ; 10 MG, DAILY FOR 21D/28D, ORAL
     Route: 048
     Dates: start: 20070629, end: 20070920
  2. REVLIMID [Suspect]
     Indication: MULTIPLE MYELOMA
     Dosage: 25 MG, 1 IN 1 D, ORAL ; 10 MG, DAILY FOR 21D/28D, ORAL
     Route: 048
     Dates: start: 20071001
  3. ZOMETA [Concomitant]
  4. ATENOLOL [Concomitant]
  5. VICODIN [Concomitant]
  6. FAMOTIDINE [Concomitant]
  7. AMBIEN [Concomitant]
  8. ACYCLOVIR [Concomitant]
  9. IBUPROFEN [Concomitant]
  10. PREPARATION H (PREPARATION H OINTMENT) (OINTMENT) [Concomitant]

REACTIONS (3)
  - BACK PAIN [None]
  - HERPES ZOSTER [None]
  - LIGHT CHAIN ANALYSIS INCREASED [None]
